FAERS Safety Report 5783103-9 (Version None)
Quarter: 2008Q2

REPORT INFORMATION
  Report Type: 
  Country: None (occurrence: None)
  Receive Date: 20080624
  Receipt Date: 20080611
  Transmission Date: 20081010
  Serious: Yes (Other)
  Sender: FDA-Public Use
  Company Number: GB-GILEAD-2008-0016906

PATIENT
  Age: 25 Year
  Sex: Female

DRUGS (4)
  1. TRUVADA [Suspect]
     Route: 048
     Dates: start: 20060701
  2. DARUNAVIR [Suspect]
     Route: 048
     Dates: start: 20060701
  3. VIRAMUNE [Suspect]
     Route: 048
     Dates: start: 20060701
  4. NORVIR [Suspect]
     Route: 048
     Dates: start: 20060701

REACTIONS (1)
  - ABORTION SPONTANEOUS [None]
